FAERS Safety Report 8802129 (Version 1)
Quarter: 2012Q4

REPORT INFORMATION
  Report Type: Report from Study
  Country: AR (occurrence: AR)
  Receive Date: 20120921
  Receipt Date: 20120921
  Transmission Date: 20130627
  Serious: Yes (Other)
  Sender: FDA-Public Use
  Company Number: AR-ABBOTT-12P-007-0982252-00

PATIENT
  Age: 46 None
  Sex: Female

DRUGS (1)
  1. HUMIRA [Suspect]
     Indication: RHEUMATOID ARTHRITIS
     Dosage: Every 14 days
     Route: 058
     Dates: start: 20080114, end: 20120804

REACTIONS (5)
  - Brain mass [Unknown]
  - Skin lesion [Unknown]
  - Localised infection [Unknown]
  - Headache [Not Recovered/Not Resolved]
  - Ocular hyperaemia [Not Recovered/Not Resolved]
